FAERS Safety Report 15955327 (Version 1)
Quarter: 2019Q1

REPORT INFORMATION
  Report Type: Spontaneous
  Country: FR (occurrence: FR)
  Receive Date: 20190213
  Receipt Date: 20190213
  Transmission Date: 20190417
  Serious: Yes (Hospitalization)
  Sender: FDA-Public Use
  Company Number: FR-ZYDUS-033278

PATIENT
  Age: 76 Year
  Sex: Female
  Weight: 67.7 kg

DRUGS (6)
  1. IRBESARTAN. [Suspect]
     Active Substance: IRBESARTAN
     Indication: HYPERTENSION
     Route: 048
     Dates: end: 20181225
  2. VAXIGRIPTETRA [Suspect]
     Active Substance: INFLUENZA VIRUS VACCINE QUADRIVALENT TYPE A+B
     Indication: INFLUENZA IMMUNISATION
     Route: 065
     Dates: start: 201811, end: 201811
  3. ELIQUIS [Suspect]
     Active Substance: APIXABAN
     Indication: PAROXYSMAL ARRHYTHMIA
     Dosage: ()
     Route: 048
     Dates: end: 20181206
  4. LACTULOSE/PARAFFIN/LIQUID/WHITE SOFT PARAFFIN [Suspect]
     Active Substance: LACTULOSE\MINERAL OIL\PETROLATUM
     Indication: CONSTIPATION
     Dosage: ORAL JELLY IN JAR
     Route: 048
     Dates: end: 20181225
  5. CALCIUM CARBONATE/COLECALCIFEROL [Suspect]
     Active Substance: CALCIUM CARBONATE\CHOLECALCIFEROL
     Indication: HYPOVITAMINOSIS
     Route: 048
     Dates: end: 20181225
  6. CODEINE PHOSPHATE/PARACETAMOL [Suspect]
     Active Substance: ACETAMINOPHEN\CODEINE PHOSPHATE
     Indication: ANALGESIC INTERVENTION SUPPORTIVE THERAPY
     Route: 048
     Dates: end: 20181225

REACTIONS (2)
  - Meningorrhagia [Recovered/Resolved]
  - Thrombocytopenia [Recovering/Resolving]

NARRATIVE: CASE EVENT DATE: 20181206
